FAERS Safety Report 21783459 (Version 2)
Quarter: 2023Q1

REPORT INFORMATION
  Report Type: Report from Study
  Country: US (occurrence: US)
  Receive Date: 20221227
  Receipt Date: 20230313
  Transmission Date: 20230418
  Serious: No
  Sender: FDA-Public Use
  Company Number: US-ABBVIE-4212352

PATIENT
  Sex: Male

DRUGS (2)
  1. HUMIRA [Suspect]
     Active Substance: ADALIMUMAB
     Indication: Uveitis
     Route: 058
  2. HUMIRA [Suspect]
     Active Substance: ADALIMUMAB
     Route: 058

REACTIONS (2)
  - Inappropriate schedule of product administration [Not Recovered/Not Resolved]
  - Therapeutic product effect incomplete [Not Recovered/Not Resolved]
